APPROVED DRUG PRODUCT: LOTRISONE
Active Ingredient: BETAMETHASONE DIPROPIONATE; CLOTRIMAZOLE
Strength: EQ 0.05% BASE;1% **Federal Register determination that product was not discontinued or withdrawn for safety or effectiveness reasons**
Dosage Form/Route: CREAM;TOPICAL
Application: N018827 | Product #001
Applicant: ORGANON LLC A SUB OF ORGANON AND CO
Approved: Jul 10, 1984 | RLD: Yes | RS: No | Type: DISCN